FAERS Safety Report 18503538 (Version 1)
Quarter: 2020Q4

REPORT INFORMATION
  Report Type: Spontaneous
  Country: GB (occurrence: GB)
  Receive Date: 20201113
  Receipt Date: 20201113
  Transmission Date: 20210114
  Serious: Yes (Other)
  Sender: FDA-Public Use
  Company Number: GB-BAUSCH-BL-2020-032164

PATIENT
  Sex: Female

DRUGS (2)
  1. UTROGESTAN [Suspect]
     Active Substance: PROGESTERONE
     Indication: HORMONE REPLACEMENT THERAPY
     Route: 048
  2. DIAZEPAM. [Suspect]
     Active Substance: DIAZEPAM
     Indication: ANXIETY
     Route: 065

REACTIONS (6)
  - Anger [Unknown]
  - Drug interaction [Unknown]
  - Aggression [Unknown]
  - Uterine haemorrhage [Unknown]
  - Withdrawal syndrome [Unknown]
  - Intentional self-injury [Unknown]
